FAERS Safety Report 4951093-4 (Version None)
Quarter: 2006Q1

REPORT INFORMATION
  Report Type: 
  Country: None (occurrence: None)
  Receive Date: 20060322
  Receipt Date: 20060313
  Transmission Date: 20060701
  Serious: Yes (Hospitalization)
  Sender: FDA-Public Use
  Company Number: BR-MERCK-0603BRA00034

PATIENT
  Age: 24 Year
  Sex: Female
  Weight: 61 kg

DRUGS (4)
  1. MONTELUKAST SODIUM [Suspect]
     Indication: RHINITIS ALLERGIC
     Route: 048
     Dates: start: 20050901, end: 20050901
  2. MONTELUKAST SODIUM [Suspect]
     Route: 048
     Dates: start: 20051101, end: 20051101
  3. BUDESONIDE [Concomitant]
     Route: 061
     Dates: start: 20050801, end: 20051101
  4. HORMONAL CONTRACEPTIVES (UNSPECIFIED) [Concomitant]
     Indication: CONTRACEPTION
     Route: 048

REACTIONS (1)
  - MIGRAINE [None]
